FAERS Safety Report 5280055-5 (Version None)
Quarter: 2007Q1

REPORT INFORMATION
  Report Type: 
  Country: None (occurrence: None)
  Receive Date: 20061229
  Receipt Date: 20060915
  Transmission Date: 20070707
  Serious: Yes (Other)
  Sender: FDA-Public Use
  Company Number: 2006UW15821

PATIENT
  Age: 71 Year
  Sex: Male

DRUGS (2)
  1. CRESTOR [Suspect]
     Indication: BLOOD CHOLESTEROL INCREASED
     Dosage: 5 MG PO
     Route: 048
     Dates: start: 20040101
  2. OTHER MEDICATIONS [Concomitant]

REACTIONS (3)
  - INCORRECT DOSE ADMINISTERED [None]
  - MALAISE [None]
  - STOMACH DISCOMFORT [None]
